APPROVED DRUG PRODUCT: IFOSFAMIDE
Active Ingredient: IFOSFAMIDE
Strength: 3GM/60ML (50MG/ML)
Dosage Form/Route: INJECTABLE;INJECTION
Application: A076619 | Product #002 | TE Code: AP
Applicant: HIKMA PHARMACEUTICALS USA INC
Approved: Jun 29, 2011 | RLD: No | RS: No | Type: RX